FAERS Safety Report 6184357-X (Version None)
Quarter: 2009Q2

REPORT INFORMATION
  Report Type: 
  Country: None (occurrence: None)
  Receive Date: 20090508
  Receipt Date: 20090501
  Transmission Date: 20091009
  Serious: Yes (Other)
  Sender: FDA-Public Use
  Company Number: A0780773A

PATIENT
  Age: 66 Year
  Sex: Female

DRUGS (2)
  1. FLUTICASONE PROPIONATE [Suspect]
     Dosage: 1SPR PER DAY
     Route: 045
     Dates: start: 20090323
  2. PRILOSEC [Concomitant]

REACTIONS (7)
  - EPISTAXIS [None]
  - FATIGUE [None]
  - HEPATIC ENZYME INCREASED [None]
  - INFLUENZA LIKE ILLNESS [None]
  - NASAL CONGESTION [None]
  - NASAL ULCER [None]
  - PYREXIA [None]
